FAERS Safety Report 19949775 (Version 1)
Quarter: 2021Q4

REPORT INFORMATION
  Report Type: Spontaneous
  Country: US (occurrence: US)
  Receive Date: 20211008
  Receipt Date: 20211008
  Transmission Date: 20220303
  Serious: Yes (Hospitalization)
  Sender: FDA-Public Use
  Company Number: None

PATIENT
  Age: 31 Year
  Sex: Male
  Weight: 123.3 kg

DRUGS (4)
  1. METHOTREXATE [Suspect]
     Active Substance: METHOTREXATE
     Dates: end: 20210927
  2. ONCASPAR [Suspect]
     Active Substance: PEGASPARGASE
     Dates: end: 20210927
  3. RITUXIMAB [Suspect]
     Active Substance: RITUXIMAB
     Dates: end: 20210927
  4. VINCRISTINE SULFATE [Suspect]
     Active Substance: VINCRISTINE SULFATE
     Dates: end: 20210927

REACTIONS (5)
  - Haematochezia [None]
  - Anaemia [None]
  - Thrombocytopenia [None]
  - Ulcer haemorrhage [None]
  - Mouth ulceration [None]

NARRATIVE: CASE EVENT DATE: 20211001
